FAERS Safety Report 4616170-6 (Version None)
Quarter: 2005Q1

REPORT INFORMATION
  Report Type: 
  Country: None (occurrence: None)
  Receive Date: 20050321
  Receipt Date: 20030203
  Transmission Date: 20050727
  Serious: Yes (Hospitalization)
  Sender: FDA-Public Use
  Company Number: 4847

PATIENT
  Age: 55 Year
  Sex: Male

DRUGS (6)
  1. MORPHINE SULFATE [Suspect]
     Indication: CANCER PAIN
     Dosage: 100 MG BID, PO
     Route: 048
     Dates: start: 20020201
  2. WARFARIN SODIUM [Concomitant]
  3. LANSOPRAZOLE [Concomitant]
  4. AMITRIPTYLINE [Concomitant]
  5. ROFECOXIB [Concomitant]
  6. CO-DANTHRAMER (POLOXAMER + DANTHRON) [Concomitant]

REACTIONS (2)
  - CONFUSIONAL STATE [None]
  - THERAPEUTIC AGENT TOXICITY [None]
